FAERS Safety Report 16262090 (Version 1)
Quarter: 2019Q2

REPORT INFORMATION
  Report Type: Spontaneous
  Country: JP (occurrence: JP)
  Receive Date: 20190501
  Receipt Date: 20190501
  Transmission Date: 20190711
  Serious: Yes (Other)
  Sender: FDA-Public Use
  Company Number: JP-PFIZER INC-2019173614

PATIENT
  Age: 5 Year
  Sex: Female

DRUGS (1)
  1. GENOTROPIN GOQUICK 5.3MG [Suspect]
     Active Substance: SOMATROPIN
     Dosage: 0.4 MGX6 TIMES IN A WEEK(NOT INJECT ON FRIDAY, INJECT AROUND 22 O^CLOCK OR 23 O^CLOCK)
     Dates: start: 20190420

REACTIONS (2)
  - Streptococcal infection [Unknown]
  - Incorrect dose administered [Unknown]
